FAERS Safety Report 5146437-7 (Version None)
Quarter: 2006Q4

REPORT INFORMATION
  Report Type: 
  Country: None (occurrence: None)
  Receive Date: 20061102
  Receipt Date: 20061019
  Transmission Date: 20070319
  Serious: Yes (Death, Hospitalization, Other)
  Sender: FDA-Public Use
  Company Number: 2006022299

PATIENT
  Sex: Male

DRUGS (4)
  1. NEURONTIN [Suspect]
     Indication: BACK PAIN
     Dosage: 2400 MG (400 MG, 6 IN 1 D)
  2. TRAZODONE HCL [Suspect]
     Indication: DRUG USE FOR UNKNOWN INDICATION
     Dosage: 50 MG (1 D)
     Dates: start: 19990821
  3. CHLORDIAZEPOXIDE [Concomitant]
  4. PROZAC [Concomitant]

REACTIONS (15)
  - ALCOHOL POISONING [None]
  - ALCOHOLIC LIVER DISEASE [None]
  - ALCOHOLISM [None]
  - ANXIETY [None]
  - COMPLETED SUICIDE [None]
  - DELIRIUM TREMENS [None]
  - DEPRESSION [None]
  - GUN SHOT WOUND [None]
  - HEPATITIS ALCOHOLIC [None]
  - INTENTIONAL SELF-INJURY [None]
  - LACERATION [None]
  - NAUSEA [None]
  - SUICIDAL IDEATION [None]
  - TRAUMATIC BRAIN INJURY [None]
  - VOMITING [None]
